FAERS Safety Report 10397298 (Version 2)
Quarter: 2014Q3

REPORT INFORMATION
  Report Type: Report from Study
  Country: US (occurrence: US)
  Receive Date: 20140820
  Receipt Date: 20140826
  Transmission Date: 20150326
  Serious: Yes (Death, Hospitalization)
  Sender: FDA-Public Use
  Company Number: US-009507513-1408USA010524

PATIENT
  Age: 22 Year
  Sex: Female
  Weight: 88.72 kg

DRUGS (6)
  1. IDARUBICIN [Suspect]
     Active Substance: IDARUBICIN
     Indication: ACUTE MYELOID LEUKAEMIA
     Dosage: 12 MG/M2, QD OVER 15 MIN ON DAYS 4-6
     Route: 042
     Dates: start: 20140615, end: 20140617
  2. VORINOSTAT [Suspect]
     Active Substance: VORINOSTAT
     Dosage: 500 MG, TID ON DAYS 1-3
     Route: 048
     Dates: start: 20140714, end: 20140716
  3. CYTARABINE. [Suspect]
     Active Substance: CYTARABINE
     Dosage: 1500 MG/M2, QD IV INFUSION ON DAYS 4-7
     Route: 042
     Dates: start: 20140717, end: 20140721
  4. VORINOSTAT [Suspect]
     Active Substance: VORINOSTAT
     Indication: ACUTE MYELOID LEUKAEMIA
     Dosage: 500 MG, TID ON DAYS 1-3
     Route: 048
     Dates: start: 20140612, end: 20140614
  5. CYTARABINE. [Suspect]
     Active Substance: CYTARABINE
     Indication: ACUTE MYELOID LEUKAEMIA
     Dosage: 1500 MG/M2, QD IV INFUSION ON DAYS 4-7
     Route: 042
     Dates: start: 20140615, end: 20140618
  6. IDARUBICIN [Suspect]
     Active Substance: IDARUBICIN
     Dosage: 12 MG/M2, QD OVER 15 MIN ON DAYS 4-6
     Route: 042
     Dates: start: 20140717, end: 20140720

REACTIONS (4)
  - Sinus tachycardia [Not Recovered/Not Resolved]
  - Sepsis [Fatal]
  - Hypotension [Not Recovered/Not Resolved]
  - Fungaemia [Not Recovered/Not Resolved]

NARRATIVE: CASE EVENT DATE: 20140804
